FAERS Safety Report 13398717 (Version 2)
Quarter: 2017Q4

REPORT INFORMATION
  Report Type: Report from Study
  Country: None (occurrence: CA)
  Receive Date: 20170403
  Receipt Date: 20171204
  Transmission Date: 20180320
  Serious: Yes (Hospitalization, Other)
  Sender: FDA-Public Use
  Company Number: CA-ABBVIE-17P-028-1922055-00

PATIENT
  Sex: Female

DRUGS (1)
  1. HUMIRA [Suspect]
     Active Substance: ADALIMUMAB
     Indication: CROHN^S DISEASE
     Route: 058
     Dates: start: 20160819, end: 20170925

REACTIONS (4)
  - Device related infection [Not Recovered/Not Resolved]
  - Intra-abdominal fluid collection [Recovering/Resolving]
  - Complication associated with device [Not Recovered/Not Resolved]
  - Stomal hernia [Not Recovered/Not Resolved]

NARRATIVE: CASE EVENT DATE: 2017
